FAERS Safety Report 23652553 (Version 6)
Quarter: 2024Q4

REPORT INFORMATION
  Report Type: Spontaneous
  Country: CA (occurrence: CA)
  Receive Date: 20240320
  Receipt Date: 20241101
  Transmission Date: 20250114
  Serious: No
  Sender: PFIZER
  Company Number: CA-PFIZER INC-202400041832

PATIENT
  Age: 10 Year
  Sex: Female

DRUGS (1)
  1. ABRILADA [Suspect]
     Active Substance: ADALIMUMAB-AFZB
     Indication: Juvenile idiopathic arthritis
     Dosage: 40 MG (PREFILLED SYRINGE), EVERY 2 WEEKS
     Route: 058
     Dates: start: 20240207, end: 2024

REACTIONS (4)
  - Injection site pain [Unknown]
  - Anxiety [Unknown]
  - Fear of injection [Unknown]
  - Treatment noncompliance [Unknown]

NARRATIVE: CASE EVENT DATE: 20240101
